FAERS Safety Report 7605212-1 (Version None)
Quarter: 2011Q3

REPORT INFORMATION
  Report Type: 
  Country: None (occurrence: None)
  Receive Date: 20110705
  Receipt Date: 20110617
  Transmission Date: 20111222
  Serious: Yes (Other)
  Sender: FDA-Public Use
  Company Number: AUR-APL-2011-02853

PATIENT
  Age: 32 Year
  Sex: Male
  Weight: 82 kg

DRUGS (4)
  1. CLENIL (BECLOMETASONE DIPROPIONATE) [Concomitant]
  2. ALBUTEROL SULFATE [Concomitant]
  3. LOSARTAN POTASSIUM [Suspect]
     Indication: HYPERTENSION
     Dosage: (50 MG),
     Dates: start: 20100813, end: 20101109
  4. TEGRETOL [Concomitant]

REACTIONS (2)
  - CONVULSION [None]
  - CONDITION AGGRAVATED [None]
